FAERS Safety Report 23090410 (Version 1)
Quarter: 2023Q4

REPORT INFORMATION
  Report Type: Spontaneous
  Country: US (occurrence: None)
  Receive Date: 20231019
  Receipt Date: 20231019
  Transmission Date: 20240110
  Serious: Yes (Disabling)
  Sender: FDA-Public Use
  Company Number: None

PATIENT
  Age: 65 Year
  Sex: Female
  Weight: 68.04 kg

DRUGS (5)
  1. ATORVASTATIN [Suspect]
     Active Substance: ATORVASTATIN
     Indication: Hyperlipidaemia
     Dosage: OTHER QUANTITY : 1 TABLET;?FREQUENCY : AT BEDTIME;?
     Route: 048
     Dates: start: 20230627, end: 20230913
  2. VITAMIN D3 [Concomitant]
     Active Substance: CHOLECALCIFEROL
  3. MENAQUINONE 6 [Concomitant]
     Active Substance: MENAQUINONE 6
  4. COENZYME Q10 [Concomitant]
     Active Substance: DIETARY SUPPLEMENT\UBIDECARENONE
  5. GARLIC [Concomitant]
     Active Substance: GARLIC

REACTIONS (7)
  - Paraesthesia [None]
  - Paraesthesia [None]
  - Pain in extremity [None]
  - Muscular weakness [None]
  - Hypoaesthesia [None]
  - Back pain [None]
  - Therapy cessation [None]

NARRATIVE: CASE EVENT DATE: 20230704
